FAERS Safety Report 17094904 (Version 1)
Quarter: 2019Q4

REPORT INFORMATION
  Report Type: Report from Study
  Country: PL (occurrence: PL)
  Receive Date: 20191130
  Receipt Date: 20191130
  Transmission Date: 20200122
  Serious: Yes (Hospitalization, Other)
  Sender: FDA-Public Use
  Company Number: PL-ACCORD-163420

PATIENT
  Age: 38 Year
  Sex: Male

DRUGS (2)
  1. VORTIOXETINE. [Interacting]
     Active Substance: VORTIOXETINE
     Indication: ANTIDEPRESSANT THERAPY
  2. HYDROCHLOROTHIAZIDE. [Suspect]
     Active Substance: HYDROCHLOROTHIAZIDE
     Indication: HYPERTENSION

REACTIONS (2)
  - Hyponatraemia [Unknown]
  - Drug interaction [Unknown]
